FAERS Safety Report 7788957-2 (Version None)
Quarter: 2011Q3

REPORT INFORMATION
  Report Type: 
  Country: None (occurrence: None)
  Receive Date: 20110930
  Receipt Date: 20110926
  Transmission Date: 20111222
  Serious: Yes (Other)
  Sender: FDA-Public Use
  Company Number: PHHY2011PT70077

PATIENT
  Age: 39 Year
  Sex: Male

DRUGS (5)
  1. MODAFANIL [Concomitant]
     Dosage: UNK
  2. ROCALTROL [Concomitant]
     Dosage: UNK
  3. GILENYA [Suspect]
     Indication: MULTIPLE SCLEROSIS
     Dosage: UNK
     Route: 048
     Dates: start: 20110726
  4. ESCITALOPRAM [Concomitant]
     Dosage: UNK
  5. GABAPENTIN [Concomitant]
     Dosage: 300 UKN, BID

REACTIONS (3)
  - MULTIPLE SCLEROSIS RELAPSE [None]
  - VIITH NERVE PARALYSIS [None]
  - LYMPHOCYTE COUNT DECREASED [None]
